FAERS Safety Report 15287100 (Version 7)
Quarter: 2019Q4

REPORT INFORMATION
  Report Type: Spontaneous
  Country: US (occurrence: US)
  Receive Date: 20180817
  Receipt Date: 20191208
  Transmission Date: 20200122
  Serious: Yes (Other)
  Sender: FDA-Public Use
  Company Number: US-BIOGEN-2018BI00619862

PATIENT
  Age: 33 Year
  Sex: Male

DRUGS (12)
  1. FIBER [Concomitant]
     Active Substance: PSYLLIUM HUSK
     Indication: PRODUCT USED FOR UNKNOWN INDICATION
     Route: 050
  2. SERTRALINE [Concomitant]
     Active Substance: SERTRALINE HYDROCHLORIDE
     Indication: PRODUCT USED FOR UNKNOWN INDICATION
     Route: 050
     Dates: start: 20171030
  3. VITAMIN D [Concomitant]
     Active Substance: VITAMIN D NOS
     Indication: PRODUCT USED FOR UNKNOWN INDICATION
     Route: 050
  4. CARNATION BREAKFAST ESSENTIALS [Concomitant]
     Indication: PRODUCT USED FOR UNKNOWN INDICATION
     Route: 050
  5. AMPYRA [Concomitant]
     Active Substance: DALFAMPRIDINE
     Indication: GAIT DISTURBANCE
     Route: 050
     Dates: start: 20170327
  6. LYRICA [Concomitant]
     Active Substance: PREGABALIN
     Route: 050
     Dates: start: 20180802
  7. VITAMIN A [Concomitant]
     Active Substance: VITAMIN A
     Indication: PRODUCT USED FOR UNKNOWN INDICATION
     Route: 050
  8. TECFIDERA [Suspect]
     Active Substance: DIMETHYL FUMARATE
     Indication: MULTIPLE SCLEROSIS
     Dosage: MAINTENANCE DOSE
     Route: 050
     Dates: start: 20170327
  9. LYRICA [Concomitant]
     Active Substance: PREGABALIN
     Indication: PRODUCT USED FOR UNKNOWN INDICATION
     Route: 050
     Dates: start: 20180412
  10. VITAMIN D3 [Concomitant]
     Active Substance: CHOLECALCIFEROL
     Indication: PRODUCT USED FOR UNKNOWN INDICATION
     Route: 050
  11. HYDROXYZINE HCL [Concomitant]
     Active Substance: HYDROXYZINE HYDROCHLORIDE
     Indication: PRODUCT USED FOR UNKNOWN INDICATION
     Dosage: IN THE EVENING
     Route: 048
  12. PROVIGIL [Concomitant]
     Active Substance: MODAFINIL
     Indication: PRODUCT USED FOR UNKNOWN INDICATION
     Dosage: AM
     Route: 050
     Dates: start: 20180802

REACTIONS (17)
  - Urinary incontinence [Recovered/Resolved]
  - Micturition urgency [Recovered/Resolved]
  - Vision blurred [Recovered/Resolved]
  - Memory impairment [Unknown]
  - Drug ineffective [Not Recovered/Not Resolved]
  - Multiple sclerosis [Not Recovered/Not Resolved]
  - Tremor [Unknown]
  - Hemianaesthesia [Unknown]
  - Eye pain [Recovered/Resolved]
  - Hypersomnia [Unknown]
  - Speech disorder [Unknown]
  - Blindness unilateral [Unknown]
  - Chest pain [Unknown]
  - Pain in extremity [Recovered/Resolved]
  - Amnesia [Unknown]
  - Decreased appetite [Unknown]
  - Hemiparesis [Unknown]

NARRATIVE: CASE EVENT DATE: 201708
